FAERS Safety Report 18604562 (Version 1)
Quarter: 2020Q4

REPORT INFORMATION
  Report Type: Spontaneous
  Country: US (occurrence: US)
  Receive Date: 20201211
  Receipt Date: 20201211
  Transmission Date: 20210114
  Serious: No
  Sender: FDA-Public Use
  Company Number: US-GLENMARK PHARMACEUTICALS-2020GMK049845

PATIENT

DRUGS (1)
  1. POTASSIUM CHLORIDE ER TABLETS USP [Suspect]
     Active Substance: POTASSIUM CHLORIDE
     Indication: BARTTER^S SYNDROME
     Dosage: 20 MILLIEQUIVALENT, 4 TIMES A DAY
     Route: 048

REACTIONS (5)
  - Product use in unapproved indication [Unknown]
  - Product coating issue [Unknown]
  - Product use complaint [Unknown]
  - Abdominal discomfort [Unknown]
  - Product solubility abnormal [Unknown]
